FAERS Safety Report 4563777-0 (Version None)
Quarter: 2005Q1

REPORT INFORMATION
  Report Type: 
  Country: None (occurrence: None)
  Receive Date: 20050128
  Receipt Date: 20040218
  Transmission Date: 20050727
  Serious: No
  Sender: FDA-Public Use
  Company Number: US-GLAXOSMITHKLINE-A0498758A

PATIENT
  Age: 38 Year
  Sex: Male

DRUGS (1)
  1. MEPRON [Suspect]
     Indication: ILL-DEFINED DISORDER
     Dosage: 2TSP PER DAY
     Route: 048
     Dates: start: 20040112, end: 20040216

REACTIONS (1)
  - XANTHOPSIA [None]
